FAERS Safety Report 19106074 (Version 1)
Quarter: 2021Q2

REPORT INFORMATION
  Report Type: Spontaneous
  Country: KR (occurrence: KR)
  Receive Date: 20210408
  Receipt Date: 20210408
  Transmission Date: 20210717
  Serious: Yes (Other)
  Sender: FDA-Public Use
  Company Number: KR-CELLTRION INC.-2021KR004570

PATIENT

DRUGS (4)
  1. LACIDOFIL [LACTOBACILLUS ACIDOPHILUS;LACTOBACILLUS RHAMNOSUS] [Concomitant]
     Dosage: 1 CAPSULE, BID
  2. MEGA D3 [Concomitant]
     Dosage: 1 TAB, ONCE A WEEK
  3. REMSIMA [Suspect]
     Active Substance: INFLIXIMAB
     Indication: CROHN^S DISEASE
     Dosage: 120 MG
     Route: 058
     Dates: start: 20210312
  4. REMSIMA [Suspect]
     Active Substance: INFLIXIMAB
     Dosage: UNK
     Route: 058
     Dates: start: 20210326

REACTIONS (4)
  - Injection site pain [Recovered/Resolved]
  - Injection site discomfort [Recovered/Resolved]
  - Injection site erythema [Unknown]
  - Discomfort [Unknown]

NARRATIVE: CASE EVENT DATE: 20210326
